FAERS Safety Report 6266195-2 (Version None)
Quarter: 2009Q3

REPORT INFORMATION
  Report Type: 
  Country: None (occurrence: None)
  Receive Date: 20090713
  Receipt Date: 20090610
  Transmission Date: 20100115
  Serious: No
  Sender: FDA-Public Use
  Company Number: US-BAYER-200911801BCC

PATIENT
  Age: 80 Year
  Sex: Female
  Weight: 66 kg

DRUGS (4)
  1. ALEVE (CAPLET) [Suspect]
     Indication: SENSITIVITY OF TEETH
     Dosage: AS USED: 880 MG  UNIT DOSE: 220 MG
     Route: 048
     Dates: start: 20090601, end: 20090610
  2. TENORMIN [Concomitant]
     Indication: DRUG USE FOR UNKNOWN INDICATION
  3. SYNTHROID [Concomitant]
     Indication: DRUG USE FOR UNKNOWN INDICATION
  4. LESCOL HAZZARD [Concomitant]
     Indication: DRUG USE FOR UNKNOWN INDICATION

REACTIONS (1)
  - OEDEMA PERIPHERAL [None]
